FAERS Safety Report 7235278-2 (Version None)
Quarter: 2011Q1

REPORT INFORMATION
  Report Type: 
  Country: None (occurrence: None)
  Receive Date: 20110110
  Receipt Date: 20100615
  Transmission Date: 20110831
  Serious: Yes (Other)
  Sender: FDA-Public Use
  Company Number: DSA_43292_2010

PATIENT
  Sex: Female

DRUGS (3)
  1. CARDIZEM [Suspect]
     Indication: ATRIAL FIBRILLATION
     Dosage: (120 MG BID)
     Dates: start: 20090701, end: 20100501
  2. TENORETIC [Concomitant]
  3. DILTIAZEM [Suspect]
     Indication: ATRIAL FIBRILLATION
     Dosage: (120 MG BID)
     Dates: start: 20100501

REACTIONS (2)
  - ATRIAL FIBRILLATION [None]
  - PRODUCT SUBSTITUTION ISSUE [None]
